FAERS Safety Report 7636886-7 (Version None)
Quarter: 2011Q3

REPORT INFORMATION
  Report Type: 
  Country: None (occurrence: None)
  Receive Date: 20110718
  Receipt Date: 20110705
  Transmission Date: 20111222
  Serious: Yes (Other)
  Sender: FDA-Public Use
  Company Number: CA-145179

PATIENT
  Sex: Female

DRUGS (1)
  1. WINRHO SDF [Suspect]
     Indication: THROMBOCYTOPENIC PURPURA
     Dosage: (1500 ?G  TOTAL INTRAVENOUS (NOT OTHERWISE SPECIFIED))
     Route: 042
     Dates: start: 20100430, end: 20100430

REACTIONS (8)
  - RETICULOCYTE PERCENTAGE INCREASED [None]
  - ANTI-ERYTHROCYTE ANTIBODY POSITIVE [None]
  - HEART RATE INCREASED [None]
  - BODY TEMPERATURE INCREASED [None]
  - HAEMOLYTIC TRANSFUSION REACTION [None]
  - PETECHIAE [None]
  - HAEMOGLOBIN DECREASED [None]
  - HAEMOGLOBINURIA [None]
